FAERS Safety Report 25116827 (Version 1)
Quarter: 2025Q1

REPORT INFORMATION
  Report Type: Spontaneous
  Country: IT (occurrence: IT)
  Receive Date: 20250325
  Receipt Date: 20250325
  Transmission Date: 20250409
  Serious: Yes (Other)
  Sender: NOVO NORDISK
  Company Number: None

PATIENT
  Age: 35 Year
  Sex: Female

DRUGS (1)
  1. WEGOVY [Suspect]
     Active Substance: SEMAGLUTIDE
     Indication: Product used for unknown indication
     Dates: start: 20250209

REACTIONS (3)
  - Conjunctival haemorrhage [Not Recovered/Not Resolved]
  - Ocular discomfort [Unknown]
  - Vision blurred [Unknown]

NARRATIVE: CASE EVENT DATE: 20250311
